FAERS Safety Report 7558802-9 (Version None)
Quarter: 2011Q2

REPORT INFORMATION
  Report Type: 
  Country: None (occurrence: None)
  Receive Date: 20110621
  Receipt Date: 20110608
  Transmission Date: 20111010
  Serious: Yes (Death, Hospitalization, Other)
  Sender: FDA-Public Use
  Company Number: RS-AMGEN-SRBSP2011026167

PATIENT
  Age: 12 Year
  Sex: Female
  Weight: 43 kg

DRUGS (6)
  1. IMURAN [Concomitant]
     Dosage: 50 MG, 1X/DAY
     Dates: start: 20090301
  2. PRONISON [Concomitant]
     Dosage: 30 MG, 1X/DAY
     Dates: start: 20020301
  3. ENBREL [Suspect]
     Indication: JUVENILE ARTHRITIS
     Dosage: 0.4 MG/KG, 2X/WEEK
     Route: 058
     Dates: start: 20060301
  4. BACTRIM [Concomitant]
     Dosage: UNK
  5. PRONISON [Concomitant]
     Dosage: 40 MG, UNK
  6. IMMUNOGLOBULINS [Concomitant]
     Dosage: UNK

REACTIONS (6)
  - HISTIOCYTOSIS HAEMATOPHAGIC [None]
  - PNEUMOCYSTIS JIROVECI INFECTION [None]
  - PYREXIA [None]
  - DISSEMINATED INTRAVASCULAR COAGULATION [None]
  - JUVENILE ARTHRITIS [None]
  - HEPATORENAL FAILURE [None]
